FAERS Safety Report 19350814 (Version 1)
Quarter: 2021Q2

REPORT INFORMATION
  Report Type: Spontaneous
  Country: CN (occurrence: CN)
  Receive Date: 20210531
  Receipt Date: 20210531
  Transmission Date: 20210717
  Serious: Yes (Hospitalization)
  Sender: FDA-Public Use
  Company Number: CN-BAXTER-2021BAX013410

PATIENT
  Age: 58 Year
  Sex: Female
  Weight: 65 kg

DRUGS (7)
  1. 0.9% SODIUM CHLORIDE INJECTION [Suspect]
     Active Substance: SODIUM CHLORIDE
     Dosage: DOXORUBICIN HYDROCHLORIDE  80 MG + 0.9% SODIUM CHLORIDE 100 ML
     Route: 041
     Dates: start: 20210511, end: 20210511
  2. DEXAMETHASONE ACETATE [Suspect]
     Active Substance: DEXAMETHASONE ACETATE
     Indication: ANTIALLERGIC THERAPY
     Dosage: TABLETS (SELF PREPARED)
     Route: 048
     Dates: start: 202105
  3. DOXORUBICIN HYDROCHLORIDE. [Suspect]
     Active Substance: DOXORUBICIN HYDROCHLORIDE
     Indication: BREAST CANCER
     Dosage: DOXORUBICIN HYDROCHLORIDE  80 MG + 0.9% SODIUM CHLORIDE 100 ML
     Route: 041
     Dates: start: 20210511, end: 20210511
  4. ENDOXAN [Suspect]
     Active Substance: CYCLOPHOSPHAMIDE
     Indication: BREAST CANCER
     Dosage: CYCLOPHOSPHAMIDE 800 MG + 0.9% SODIUM CHLORIDE  100 ML
     Route: 041
     Dates: start: 20210511, end: 20210511
  5. 0.9% SODIUM CHLORIDE INJECTION [Suspect]
     Active Substance: SODIUM CHLORIDE
     Indication: MEDICATION DILUTION
     Dosage: CYCLOPHOSPHAMIDE 800 MG + 0.9% SODIUM CHLORIDE  100 ML
     Route: 041
     Dates: start: 20210511, end: 20210511
  6. 0.9% SODIUM CHLORIDE INJECTION [Suspect]
     Active Substance: SODIUM CHLORIDE
     Dosage: DOCETAXEL 120 MG + 0.9% SODIUM CHLORIDE 250 ML
     Route: 041
     Dates: start: 20210511, end: 20210511
  7. DOCETAXEL. [Suspect]
     Active Substance: DOCETAXEL
     Indication: BREAST CANCER
     Dosage: DOCETAXEL 120 MG + 0.9% SODIUM CHLORIDE 250 ML
     Route: 041
     Dates: start: 20210511, end: 20210511

REACTIONS (1)
  - Myelosuppression [Recovering/Resolving]

NARRATIVE: CASE EVENT DATE: 20210518
